FAERS Safety Report 5323363-1 (Version None)
Quarter: 2007Q2

REPORT INFORMATION
  Report Type: 
  Country: None (occurrence: None)
  Receive Date: 20070514
  Receipt Date: 20070509
  Transmission Date: 20071010
  Serious: Yes (Other)
  Sender: FDA-Public Use
  Company Number: PHFR2007GB01564

PATIENT
  Age: 10 Year
  Sex: Female

DRUGS (1)
  1. LIORESAL [Suspect]
     Indication: MUSCLE SPASTICITY
     Dosage: 10 MG, TID
     Route: 048
     Dates: end: 20070504

REACTIONS (5)
  - BRADYCARDIA [None]
  - COLD SWEAT [None]
  - HYPERHIDROSIS [None]
  - MUSCLE SPASTICITY [None]
  - TACHYCARDIA [None]
